FAERS Safety Report 8915364 (Version 1)
Quarter: 2012Q4

REPORT INFORMATION
  Report Type: 
  Country: CH (occurrence: CH)
  Receive Date: 20121116
  Receipt Date: 20121116
  Transmission Date: 20130627
  Serious: Yes (Hospitalization)
  Sender: FDA-Public Use
  Company Number: CH-BAYER-2012-119641

PATIENT
  Age: 83 Year
  Sex: Male

DRUGS (9)
  1. ASPIRIN CARDIO [Suspect]
     Dosage: 100 mg, QD
     Route: 048
  2. SINTROM [Suspect]
     Route: 048
  3. IBUPROFEN [Suspect]
  4. PREDNISONE [Suspect]
  5. CALCIMAGON-D 3 [Concomitant]
     Dosage: 1 DF, BID
  6. LISITRIL [Concomitant]
     Dosage: 10 mg, QD
  7. METOPROLOL SUCCINATE [Concomitant]
     Dosage: 50 mg, QD
  8. TORASEMIDE [Concomitant]
     Dosage: 10 mg, QD
  9. DAFALGAN [Concomitant]
     Dosage: 1 DF, TID

REACTIONS (1)
  - Haemorrhage intracranial [Recovering/Resolving]
